FAERS Safety Report 7431773-1 (Version None)
Quarter: 2011Q1

REPORT INFORMATION
  Report Type: 
  Country: None (occurrence: None)
  Receive Date: 20110302
  Receipt Date: 20101026
  Transmission Date: 20110831
  Serious: No
  Sender: FDA-Public Use
  Company Number: 021220

PATIENT
  Sex: Male

DRUGS (1)
  1. CIMZIA [Suspect]
     Dosage: ON HOLD SUBCUTANEOUS
     Route: 058
     Dates: start: 20090126

REACTIONS (2)
  - THERAPEUTIC PROCEDURE [None]
  - INCISION SITE INFECTION [None]
